FAERS Safety Report 17056281 (Version 2)
Quarter: 2020Q1

REPORT INFORMATION
  Report Type: Spontaneous
  Country: US (occurrence: US)
  Receive Date: 20191121
  Receipt Date: 20200106
  Transmission Date: 20200409
  Serious: No
  Sender: FDA-Public Use
  Company Number: US-AMGEN-USASP2019190563

PATIENT
  Age: 16 Year
  Sex: Male
  Weight: 50 kg

DRUGS (3)
  1. NPLATE [Suspect]
     Active Substance: ROMIPLOSTIM
     Dosage: 450 MICROGRAM, QWK
     Route: 065
  2. NPLATE [Suspect]
     Active Substance: ROMIPLOSTIM
     Dosage: 500 MICROGRAM, QWK
     Route: 065
  3. NPLATE [Suspect]
     Active Substance: ROMIPLOSTIM
     Indication: IMMUNE THROMBOCYTOPENIC PURPURA
     Dosage: 460 MICROGRAM, QWK
     Route: 065
     Dates: start: 20190118

REACTIONS (1)
  - Product preparation issue [Unknown]

NARRATIVE: CASE EVENT DATE: 20191112
